FAERS Safety Report 8924681 (Version 2)
Quarter: 2012Q4

REPORT INFORMATION
  Report Type: 
  Country: JP (occurrence: JP)
  Receive Date: 20121126
  Receipt Date: 20121207
  Transmission Date: 20130627
  Serious: Yes (Death)
  Sender: FDA-Public Use
  Company Number: JP-ROCHE-1158439

PATIENT
  Age: 70 Year
  Sex: Female

DRUGS (2)
  1. AVASTIN [Suspect]
     Indication: BREAST CANCER METASTATIC
     Dosage: Dosage is uncertain.
     Route: 041
  2. PACLITAXEL [Concomitant]
     Indication: BREAST CANCER METASTATIC
     Dosage: Dosage is uncertain.
     Route: 041

REACTIONS (1)
  - Metastases to meninges [Fatal]
